FAERS Safety Report 14997364 (Version 7)
Quarter: 2020Q1

REPORT INFORMATION
  Report Type: Spontaneous
  Country: ES (occurrence: ES)
  Receive Date: 20180611
  Receipt Date: 20200115
  Transmission Date: 20200409
  Serious: Yes (Hospitalization, Other)
  Sender: FDA-Public Use
  Company Number: ES-MYLANLABS-2018M1039883

PATIENT
  Age: 74 Year
  Sex: Female

DRUGS (14)
  1. QUETIAPINE. [Interacting]
     Active Substance: QUETIAPINE
     Indication: HALLUCINATION
  2. PRAVASTATIN. [Concomitant]
     Active Substance: PRAVASTATIN
     Dosage: 20 MG, Q4D
  3. FLUOXETINE [Suspect]
     Active Substance: FLUOXETINE HYDROCHLORIDE
     Indication: DEPRESSION
     Dosage: 20 MG, AM,1-0-0
     Route: 065
     Dates: start: 201403
  4. BISOPROLOL [Concomitant]
     Active Substance: BISOPROLOL
     Indication: PRODUCT USED FOR UNKNOWN INDICATION
     Dosage: 2.5 MG, UNK,(1-1/2-0)
     Dates: start: 20170414
  5. LOSARTAN HYDROCHLOROTHIAZIDE ACTAVIS [Concomitant]
     Active Substance: HYDROCHLOROTHIAZIDE\LOSARTAN POTASSIUM
     Indication: PRODUCT USED FOR UNKNOWN INDICATION
     Dosage: UNK, AM
  6. FLUPENTIXOL W/MELITRACEN [Suspect]
     Active Substance: FLUPENTIXOL\MELITRACEN
     Indication: PRODUCT USED FOR UNKNOWN INDICATION
     Dosage: UNK, AM
     Route: 065
     Dates: start: 20170504
  7. RISPERIDONE. [Interacting]
     Active Substance: RISPERIDONE
     Indication: PRODUCT USED FOR UNKNOWN INDICATION
     Dosage: DOSAGE FORM: SOLUTION
     Dates: start: 20170817
  8. QUETIAPINE. [Interacting]
     Active Substance: QUETIAPINE
     Indication: DEAFNESS
     Dosage: 25 MG, PM,0-0-1
     Route: 065
     Dates: end: 20170809
  9. AMLODIPINE [Concomitant]
     Active Substance: AMLODIPINE BESYLATE
     Indication: PRODUCT USED FOR UNKNOWN INDICATION
     Dosage: 5 MG, AM,1-0-0
     Route: 065
     Dates: start: 20170602
  10. PRAVASTATIN. [Concomitant]
     Active Substance: PRAVASTATIN
     Indication: PRODUCT USED FOR UNKNOWN INDICATION
     Dosage: 20 MG, PM,(0-0-1)
     Route: 065
     Dates: start: 20170426
  11. AMIODARONE [Concomitant]
     Active Substance: AMIODARONE
     Indication: PRODUCT USED FOR UNKNOWN INDICATION
     Dosage: 200 MG, UNK,(0-1-0) EXCEPT TH AND SUN
     Dates: start: 20170717
  12. PARACETAMOL [Concomitant]
     Active Substance: ACETAMINOPHEN
     Indication: PRODUCT USED FOR UNKNOWN INDICATION
     Dosage: 1 G, TID,(1-1-1)
     Dates: start: 20170418
  13. LEVETIRACETAM. [Interacting]
     Active Substance: LEVETIRACETAM
     Indication: PRODUCT USED FOR UNKNOWN INDICATION
     Dosage: 500 MG, BID,1-0-1
     Route: 065
     Dates: start: 201706, end: 201708
  14. LOSARTAN HYDROCHLOROTHIAZIDE ACTAVIS [Concomitant]
     Active Substance: HYDROCHLOROTHIAZIDE\LOSARTAN POTASSIUM
     Dosage: UNK, Q4D
     Dates: start: 20170403

REACTIONS (13)
  - Hyperthermia [Unknown]
  - Hyperhidrosis [Unknown]
  - Oliguria [Unknown]
  - Sudden hearing loss [Unknown]
  - Drug interaction [Unknown]
  - Sleep disorder [Unknown]
  - Hallucination, auditory [Unknown]
  - Suicidal ideation [Unknown]
  - Hallucination [Unknown]
  - Serotonin syndrome [Unknown]
  - Weight increased [Unknown]
  - Tinnitus [Unknown]
  - Oedema [Unknown]
